FAERS Safety Report 20801834 (Version 2)
Quarter: 2023Q2

REPORT INFORMATION
  Report Type: Spontaneous
  Country: US (occurrence: US)
  Receive Date: 20220509
  Receipt Date: 20230602
  Transmission Date: 20230722
  Serious: No
  Sender: FDA-Public Use
  Company Number: US-UCBSA-2021017448

PATIENT
  Sex: Male

DRUGS (11)
  1. CIMZIA [Suspect]
     Active Substance: CERTOLIZUMAB PEGOL
     Indication: Psoriasis
     Dosage: 400 MILLIGRAM, EV 4 WEEKS
     Route: 058
     Dates: start: 20201216
  2. ADVIL [Concomitant]
     Active Substance: IBUPROFEN
     Indication: Product used for unknown indication
  3. ATORVASTATIN [Concomitant]
     Active Substance: ATORVASTATIN
     Indication: Product used for unknown indication
  4. CLOBETASOL [Concomitant]
     Active Substance: CLOBETASOL
     Indication: Product used for unknown indication
  5. COSENTYX [Concomitant]
     Active Substance: SECUKINUMAB
     Indication: Product used for unknown indication
  6. ENALAPRIL [Concomitant]
     Active Substance: ENALAPRIL
     Indication: Product used for unknown indication
  7. FISH OIL [Concomitant]
     Active Substance: FISH OIL
     Indication: Product used for unknown indication
  8. METOPROLOL [Concomitant]
     Active Substance: METOPROLOL
     Indication: Product used for unknown indication
  9. MOMETASONE [Concomitant]
     Active Substance: MOMETASONE
     Indication: Product used for unknown indication
  10. TRIAMCINOLONE [Concomitant]
     Active Substance: TRIAMCINOLONE
     Indication: Product used for unknown indication
  11. TYLENOL [Concomitant]
     Active Substance: ACETAMINOPHEN
     Indication: Product used for unknown indication

REACTIONS (1)
  - Drug hypersensitivity [Unknown]
